FAERS Safety Report 5943178-0 (Version None)
Quarter: 2008Q4

REPORT INFORMATION
  Report Type: 
  Country: None (occurrence: None)
  Receive Date: 20081106
  Receipt Date: 20081031
  Transmission Date: 20090506
  Serious: Yes (Hospitalization)
  Sender: FDA-Public Use
  Company Number: A0755097A

PATIENT
  Age: 59 Year
  Sex: Male
  Weight: 56.4 kg

DRUGS (2)
  1. AVANDIA [Suspect]
     Dosage: 8MG PER DAY
     Route: 048
     Dates: start: 20060101, end: 20070101
  2. AVANDARYL [Suspect]
     Dosage: 8MG TWICE PER DAY
     Route: 048
     Dates: start: 20060101, end: 20070101

REACTIONS (8)
  - ANXIETY [None]
  - ASTHENIA [None]
  - CHEST PAIN [None]
  - DEPRESSION [None]
  - DIZZINESS [None]
  - DYSPNOEA [None]
  - MYOCARDIAL INFARCTION [None]
  - VISION BLURRED [None]
